FAERS Safety Report 10065109 (Version 3)
Quarter: 2014Q2

REPORT INFORMATION
  Report Type: Report from Study
  Country: US (occurrence: US)
  Receive Date: 20140408
  Receipt Date: 20140414
  Transmission Date: 20141212
  Serious: Yes (Death, Hospitalization)
  Sender: FDA-Public Use
  Company Number: US-ACTELION-A-US2014-96818

PATIENT
  Age: 71 Year
  Sex: Female

DRUGS (4)
  1. TRACLEER [Suspect]
     Indication: PULMONARY ARTERIAL HYPERTENSION
     Dosage: UNK
     Route: 048
  2. VENTAVIS [Suspect]
     Indication: PULMONARY ARTERIAL HYPERTENSION
     Dosage: 2.5 MCG, UNK
     Route: 055
     Dates: start: 20140321, end: 20140407
  3. ADCIRCA [Concomitant]
  4. TYVASO [Concomitant]

REACTIONS (8)
  - Death [Fatal]
  - Anaemia [Unknown]
  - Hypotension [Unknown]
  - Headache [Unknown]
  - Dyspnoea [Unknown]
  - Epistaxis [Unknown]
  - Haemoptysis [Unknown]
  - Asthenia [Unknown]
